FAERS Safety Report 5851896-8 (Version None)
Quarter: 2008Q3

REPORT INFORMATION
  Report Type: 
  Country: None (occurrence: None)
  Receive Date: 20080820
  Receipt Date: 20080813
  Transmission Date: 20090109
  Serious: Yes (Death, Hospitalization)
  Sender: FDA-Public Use
  Company Number: US-PFIZER INC-2005095942

PATIENT
  Sex: Female
  Weight: 48 kg

DRUGS (11)
  1. SUTENT [Suspect]
     Indication: GASTROINTESTINAL STROMAL TUMOUR
     Route: 048
     Dates: start: 20040716, end: 20050702
  2. SYNTHROID [Concomitant]
     Route: 048
  3. PREVACID [Concomitant]
     Route: 048
  4. MONTELUKAST SODIUM [Concomitant]
     Route: 048
  5. ZYRTEC [Concomitant]
     Route: 048
  6. ALBUTEROL [Concomitant]
     Route: 055
  7. MOTRIN [Concomitant]
     Route: 048
  8. TYLENOL (CAPLET) [Concomitant]
     Route: 048
  9. ZANTAC [Concomitant]
     Route: 048
  10. EUCERIN [Concomitant]
     Route: 061
  11. MEGACE [Concomitant]
     Route: 048

REACTIONS (3)
  - DEHYDRATION [None]
  - HEPATIC FAILURE [None]
  - HEPATOTOXICITY [None]
